FAERS Safety Report 4609412-4 (Version None)
Quarter: 2005Q1

REPORT INFORMATION
  Report Type: 
  Country: None (occurrence: None)
  Receive Date: 20050314
  Receipt Date: 20050302
  Transmission Date: 20050727
  Serious: Yes (Death)
  Sender: FDA-Public Use
  Company Number: 083-20785-05030176

PATIENT
  Age: 71 Year
  Sex: Female

DRUGS (8)
  1. THALOMID [Suspect]
     Indication: MULTIPLE MYELOMA
     Dosage: 100 MG, QD, ORAL
     Route: 048
  2. DEXAMETHASONE [Suspect]
     Indication: MULTIPLE MYELOMA
     Dosage: 40 MG X 4D QMONTHLY, QD, ORAL
     Route: 048
  3. MELPHALAN (MELPHALAN) [Concomitant]
  4. PREDNISONE [Concomitant]
  5. TENIPOSIDE (TENIPOSIDE) [Concomitant]
  6. CYCLOPHOSPHAMIDE [Concomitant]
  7. RADIATION THERAPY [Concomitant]
  8. DIPHOSPHONATES (ALENDRONATE SODIUM) [Concomitant]

REACTIONS (1)
  - CACHEXIA [None]
